FAERS Safety Report 5710665-X (Version None)
Quarter: 2008Q2

REPORT INFORMATION
  Report Type: 
  Country: None (occurrence: None)
  Receive Date: 20080415
  Receipt Date: 20080410
  Transmission Date: 20081010
  Serious: Yes (Hospitalization)
  Sender: FDA-Public Use
  Company Number: 2008SP006305

PATIENT
  Age: 58 Year
  Sex: Male

DRUGS (3)
  1. PEGINTERFERON ALFA-2B (S-P) (PEGINTERFERON ALFA-2B) [Suspect]
     Indication: HEPATIC CIRRHOSIS
     Dosage: 1.0 MCG/KG; QW; SC, 0.5 MCG/KG; QW; SC
     Route: 058
     Dates: start: 20080319, end: 20080319
  2. PEGINTERFERON ALFA-2B (S-P) (PEGINTERFERON ALFA-2B) [Suspect]
     Indication: HEPATIC CIRRHOSIS
     Dosage: 1.0 MCG/KG; QW; SC, 0.5 MCG/KG; QW; SC
     Route: 058
     Dates: start: 20080328
  3. RIBAVIRIN [Suspect]
     Indication: HEPATIC CIRRHOSIS
     Dosage: 600 MG; QD; PO
     Route: 048
     Dates: start: 20080319

REACTIONS (2)
  - DIPLOPIA [None]
  - EYE DISORDER [None]
